FAERS Safety Report 17404649 (Version 1)
Quarter: 2020Q1

REPORT INFORMATION
  Report Type: Spontaneous
  Country: FR (occurrence: FR)
  Receive Date: 20200211
  Receipt Date: 20200211
  Transmission Date: 20200409
  Serious: Yes (Other)
  Sender: FDA-Public Use
  Company Number: FR-ASTRAZENECA-2020SE19737

PATIENT
  Sex: Male

DRUGS (2)
  1. MEPOLIZUMAB [Concomitant]
     Active Substance: MEPOLIZUMAB
  2. BENRALIZUMAB. [Suspect]
     Active Substance: BENRALIZUMAB
     Route: 058

REACTIONS (1)
  - Erythema multiforme [Unknown]
